FAERS Safety Report 9986247 (Version 2)
Quarter: 2014Q1

REPORT INFORMATION
  Report Type: Report from Study
  Country: US (occurrence: US)
  Receive Date: 20140307
  Receipt Date: 20140307
  Transmission Date: 20141002
  Serious: Yes (Hospitalization, Other)
  Sender: FDA-Public Use
  Company Number: US-ABBVIE-13P-163-1086489-00

PATIENT
  Age: 69 Year
  Sex: Male
  Weight: 136.2 kg

DRUGS (6)
  1. HUMIRA [Suspect]
     Indication: PSORIASIS
     Route: 058
  2. GABAPENTIN [Concomitant]
     Indication: BACK PAIN
  3. POTASSIUM [Concomitant]
     Indication: MINERAL SUPPLEMENTATION
  4. LOSARTAN [Concomitant]
     Indication: HYPERTENSION
  5. OXYCODONE [Concomitant]
     Indication: PRODUCT USED FOR UNKNOWN INDICATION
  6. DOXAZOSIN [Concomitant]
     Indication: PROSTATOMEGALY

REACTIONS (8)
  - Influenza [Recovered/Resolved]
  - Pneumonia [Recovered/Resolved]
  - Pulmonary embolism [Unknown]
  - Fatigue [Recovered/Resolved]
  - Blood pressure increased [Recovered/Resolved]
  - Hemiparesis [Recovered/Resolved]
  - Injection site bruising [Recovered/Resolved]
  - Injection site mass [Recovered/Resolved]
